FAERS Safety Report 11463517 (Version 1)
Quarter: 2015Q3

REPORT INFORMATION
  Report Type: Spontaneous
  Country: US (occurrence: US)
  Receive Date: 20150831
  Receipt Date: 20150831
  Transmission Date: 20151125
  Serious: No
  Sender: FDA-Public Use
  Company Number: US-ELI_LILLY_AND_COMPANY-US201103006662

PATIENT
  Age: 86 Year
  Sex: Female

DRUGS (2)
  1. CYMBALTA [Suspect]
     Active Substance: DULOXETINE HYDROCHLORIDE
     Indication: URINARY INCONTINENCE
     Dosage: 30 MG, QD
     Dates: start: 20110315
  2. DETROL [Concomitant]
     Active Substance: TOLTERODINE TARTRATE

REACTIONS (4)
  - Dizziness [Unknown]
  - Fall [Unknown]
  - Hypersomnia [Unknown]
  - Off label use [Not Recovered/Not Resolved]

NARRATIVE: CASE EVENT DATE: 201103
